FAERS Safety Report 16822479 (Version 1)
Quarter: 2019Q3

REPORT INFORMATION
  Report Type: Spontaneous
  Country: US (occurrence: US)
  Receive Date: 20190918
  Receipt Date: 20190918
  Transmission Date: 20191005
  Serious: Yes (Hospitalization, Other)
  Sender: FDA-Public Use
  Company Number: US-HIKMA PHARMACEUTICALS USA INC.-US-H14001-19-46956

PATIENT
  Age: 58 Year
  Sex: Male

DRUGS (3)
  1. VIEKIRA PAK [Interacting]
     Active Substance: DASABUVIR\OMBITASVIR\PARITAPREVIR\RITONAVIR
     Indication: HEPATITIS C
     Route: 065
  2. LAMOTRIGINE. [Concomitant]
     Active Substance: LAMOTRIGINE
     Indication: EPILEPSY
     Dosage: EPILEPSY HAD BEEN CONTROLLED ON LAMOTRIGINE FOR YEARS
     Route: 065
  3. QUETIAPINE. [Suspect]
     Active Substance: QUETIAPINE
     Indication: PRODUCT USED FOR UNKNOWN INDICATION
     Route: 065

REACTIONS (17)
  - Acute kidney injury [Unknown]
  - Sinus tachycardia [Unknown]
  - Accidental overdose [Unknown]
  - Toxicity to various agents [Unknown]
  - Tremor [Unknown]
  - Drug interaction [Unknown]
  - Dry mouth [Unknown]
  - Respiratory acidosis [Unknown]
  - Confusional state [Unknown]
  - Electrocardiogram QT prolonged [Unknown]
  - Distributive shock [Unknown]
  - Seizure [Unknown]
  - Delirium [Unknown]
  - Anaemia [Unknown]
  - Hypokalaemia [Unknown]
  - Hypotension [Unknown]
  - Miosis [Unknown]
